FAERS Safety Report 6233901-2 (Version None)
Quarter: 2009Q2

REPORT INFORMATION
  Report Type: 
  Country: None (occurrence: None)
  Receive Date: 20090616
  Receipt Date: 20090616
  Transmission Date: 20091009
  Serious: No
  Sender: FDA-Public Use
  Company Number: None

PATIENT
  Age: 50 Year
  Sex: Female
  Weight: 49.8957 kg

DRUGS (1)
  1. LEVAQUIN [Suspect]
     Indication: BRONCHITIS
     Dosage: 500MG DAILY IM
     Route: 030
     Dates: start: 20090606, end: 20090613

REACTIONS (6)
  - ARTHRALGIA [None]
  - DIZZINESS [None]
  - DRUG EFFECT DECREASED [None]
  - DYSSTASIA [None]
  - NAUSEA [None]
  - PAIN [None]
